FAERS Safety Report 21384593 (Version 2)
Quarter: 2022Q3

REPORT INFORMATION
  Report Type: Spontaneous
  Country: US (occurrence: US)
  Receive Date: 20220928
  Receipt Date: 20220929
  Transmission Date: 20221027
  Serious: No
  Sender: FDA-Public Use
  Company Number: US-PFIZER INC-202201187992

PATIENT
  Age: 87 Year
  Sex: Male
  Weight: 86.64 kg

DRUGS (6)
  1. PAXLOVID [Suspect]
     Active Substance: NIRMATRELVIR\RITONAVIR
     Indication: COVID-19 treatment
     Dosage: SIX DOSES A DAY FOR FIVE DAYS
     Dates: start: 20220925
  2. ASPIRIN [Concomitant]
     Active Substance: ASPIRIN
     Dosage: 81 MG, 1X/DAY
  3. FINASTERIDE [Concomitant]
     Active Substance: FINASTERIDE
     Indication: Prostate ablation
     Dosage: 5MG, 1X/DAY
  4. CALCIUM [Concomitant]
     Active Substance: CALCIUM
     Dosage: 238 MG
  5. MAGNESIUM [Concomitant]
     Active Substance: MAGNESIUM
     Dosage: 143 MG
  6. CHLORIDE ION [Concomitant]
     Active Substance: CHLORIDE ION
     Dosage: 416 MG

REACTIONS (1)
  - Circumstance or information capable of leading to medication error [Unknown]
